FAERS Safety Report 14935104 (Version 2)
Quarter: 2018Q2

REPORT INFORMATION
  Report Type: Spontaneous
  Country: ES (occurrence: ES)
  Receive Date: 20180524
  Receipt Date: 20180605
  Transmission Date: 20180711
  Serious: Yes (Hospitalization, Other)
  Sender: FDA-Public Use
  Company Number: ES-INCYTE CORPORATION-2018IN004888

PATIENT

DRUGS (2)
  1. JAKAVI [Suspect]
     Active Substance: RUXOLITINIB
     Indication: MYELOFIBROSIS
     Dosage: 20 MG, BID
     Route: 048
     Dates: start: 20161017
  2. AZATHIOPRINE. [Concomitant]
     Active Substance: AZATHIOPRINE
     Indication: PANNICULITIS
     Dosage: UNK
     Route: 065

REACTIONS (9)
  - Anaemia [Unknown]
  - Musculoskeletal pain [Unknown]
  - Pleuritic pain [Unknown]
  - Pain in extremity [Unknown]
  - Mitral valve stenosis [Unknown]
  - Pyrexia [Unknown]
  - Pleural effusion [Unknown]
  - Inflammation [Unknown]
  - Staphylococcal bacteraemia [Recovered/Resolved]

NARRATIVE: CASE EVENT DATE: 20180501
